FAERS Safety Report 8904158 (Version 2)
Quarter: 2012Q4

REPORT INFORMATION
  Report Type: 
  Country: US (occurrence: US)
  Receive Date: 20121112
  Receipt Date: 20121126
  Transmission Date: 20130627
  Serious: Yes (Death, Hospitalization)
  Sender: FDA-Public Use
  Company Number: US-B.I. PHARMACEUTICALS,INC./RIDGEFIELD-2012-BP-27548BP

PATIENT
  Age: 89 Year
  Sex: Male

DRUGS (4)
  1. PRADAXA [Suspect]
     Indication: ATRIAL FIBRILLATION
     Dosage: 300 mg
     Route: 048
     Dates: start: 201208
  2. SOTALOL [Concomitant]
  3. NIASPAN [Concomitant]
  4. ASPIRIN [Concomitant]

REACTIONS (1)
  - Cerebral haemorrhage [Fatal]
